FAERS Safety Report 5993773-8 (Version None)
Quarter: 2008Q4

REPORT INFORMATION
  Report Type: 
  Country: None (occurrence: None)
  Receive Date: 20081212
  Receipt Date: 20081202
  Transmission Date: 20090506
  Serious: Yes (Other)
  Sender: FDA-Public Use
  Company Number: JP-ELI_LILLY_AND_COMPANY-JP200811001776

PATIENT
  Age: 70 Year
  Sex: Female

DRUGS (4)
  1. EVISTA [Suspect]
     Indication: OSTEOPOROSIS
     Dosage: 60 MG, DAILY (1/D)
     Route: 048
     Dates: start: 20070220, end: 20081114
  2. ZETIA [Concomitant]
     Indication: HYPERLIPIDAEMIA
     Dosage: 1 D/F, DAILY (1/D)
     Route: 048
     Dates: start: 20080726, end: 20081127
  3. ACTOS [Concomitant]
     Indication: DIABETES MELLITUS
     Dosage: 15 MG, DAILY (1/D)
     Route: 048
     Dates: start: 20080726, end: 20081127
  4. LASIX [Concomitant]
     Indication: HYPERTENSION
     Dosage: 20 MG, DAILY (1/D)
     Route: 048
     Dates: start: 20080905, end: 20081127

REACTIONS (1)
  - ALOPECIA [None]
